FAERS Safety Report 6043133-9 (Version None)
Quarter: 2009Q1

REPORT INFORMATION
  Report Type: 
  Country: None (occurrence: None)
  Receive Date: 20090119
  Receipt Date: 20090106
  Transmission Date: 20090719
  Serious: Yes (Hospitalization)
  Sender: FDA-Public Use
  Company Number: US-ROCHE-606550

PATIENT

DRUGS (1)
  1. XELODA [Suspect]
     Indication: BREAST CANCER
     Route: 065
     Dates: start: 20081201

REACTIONS (4)
  - DIHYDROPYRIMIDINE DEHYDROGENASE DEFICIENCY [None]
  - GASTROINTESTINAL ULCER [None]
  - NECROSIS [None]
  - PANCYTOPENIA [None]
